FAERS Safety Report 5688658-0 (Version None)
Quarter: 2008Q1

REPORT INFORMATION
  Report Type: 
  Country: None (occurrence: None)
  Receive Date: 20080331
  Receipt Date: 20080320
  Transmission Date: 20080703
  Serious: Yes (Other)
  Sender: FDA-Public Use
  Company Number: PHNU2008DE01361

PATIENT
  Age: 48 Year
  Sex: Female

DRUGS (10)
  1. SANDIMMUNE [Suspect]
     Indication: GLOMERULONEPHRITIS MINIMAL LESION
     Dosage: UNK, UNK
  2. CLINDAMYCIN HCL [Concomitant]
     Indication: PROPHYLAXIS
     Dosage: 300 MG, TID
     Route: 048
     Dates: end: 20080318
  3. L-THYROXINE [Concomitant]
     Dosage: 50 MG, QD
  4. OMEPRAZOLE [Concomitant]
     Dosage: 20 MG, QD
  5. DIOVAN HCT [Concomitant]
     Dosage: 1 DF, QD
     Route: 048
  6. INEGY [Concomitant]
     Dosage: 1 DF, QD
  7. CALCIUM [Concomitant]
  8. MCP [Concomitant]
  9. MAALOXAN [Concomitant]
  10. MYFORTIC [Suspect]
     Indication: GLOMERULONEPHRITIS MINIMAL LESION
     Dosage: 360 MG, BID
     Route: 048
     Dates: start: 20070801

REACTIONS (7)
  - BONE INFARCTION [None]
  - DIARRHOEA [None]
  - FLATULENCE [None]
  - GASTROOESOPHAGEAL REFLUX DISEASE [None]
  - ORAL CANDIDIASIS [None]
  - SYSTEMIC LUPUS ERYTHEMATOSUS [None]
  - TOOTH DISORDER [None]
